FAERS Safety Report 10979686 (Version 2)
Quarter: 2015Q2

REPORT INFORMATION
  Report Type: Spontaneous
  Country: US (occurrence: US)
  Receive Date: 20150402
  Receipt Date: 20150427
  Transmission Date: 20150821
  Serious: Yes (Death, Hospitalization)
  Sender: FDA-Public Use
  Company Number: US-ACTELION-A-US2015-115397

PATIENT
  Age: 52 Year
  Sex: Female

DRUGS (3)
  1. VELETRI [Suspect]
     Active Substance: EPOPROSTENOL
     Dosage: 10 NG/KG, PER MIN
     Route: 042
     Dates: start: 20150312
  2. OPSUMIT [Suspect]
     Active Substance: MACITENTAN
     Indication: PULMONARY ARTERIAL HYPERTENSION
     Dosage: 10 MG, QD
     Route: 048
     Dates: start: 20140506
  3. VELETRI [Suspect]
     Active Substance: EPOPROSTENOL
     Indication: PULMONARY ARTERIAL HYPERTENSION
     Dosage: 2 NG/KG, PER MIN
     Route: 042
     Dates: start: 20150321, end: 20150328

REACTIONS (7)
  - Death [Fatal]
  - Facial pain [Recovered/Resolved]
  - Headache [Recovered/Resolved]
  - Pain in jaw [Recovered/Resolved]
  - Nausea [Recovered/Resolved]
  - Vomiting [Recovered/Resolved]
  - Device issue [Recovered/Resolved]

NARRATIVE: CASE EVENT DATE: 20150321
